FAERS Safety Report 4946122-8 (Version None)
Quarter: 2006Q1

REPORT INFORMATION
  Report Type: 
  Country: None (occurrence: None)
  Receive Date: 20060316
  Receipt Date: 20051003
  Transmission Date: 20060701
  Serious: Yes (Hospitalization)
  Sender: FDA-Public Use
  Company Number: US-MERCK-0510USA02652

PATIENT
  Age: 65 Year
  Sex: Male
  Weight: 71 kg

DRUGS (8)
  1. VIOXX [Suspect]
     Indication: RHEUMATOID ARTHRITIS
     Route: 048
     Dates: start: 20000906, end: 20041021
  2. VIOXX [Suspect]
     Route: 048
     Dates: start: 20010809
  3. VIOXX [Suspect]
     Route: 048
  4. QUININE [Concomitant]
     Route: 065
  5. DARVOCET [Concomitant]
     Route: 065
  6. VALIUM [Concomitant]
     Route: 065
  7. SECONAL SODIUM [Concomitant]
     Route: 065
  8. ASPIRIN [Concomitant]
     Route: 065

REACTIONS (12)
  - ANGINA PECTORIS [None]
  - CARDIOVASCULAR DISORDER [None]
  - CORONARY ARTERY DISEASE [None]
  - EJECTION FRACTION DECREASED [None]
  - HAEMOGLOBIN INCREASED [None]
  - HYPERLIPIDAEMIA [None]
  - HYPERTENSION [None]
  - ISCHAEMIC CARDIOMYOPATHY [None]
  - MITRAL VALVE INCOMPETENCE [None]
  - MYOCARDIAL INFARCTION [None]
  - NASOPHARYNGITIS [None]
  - SINUS BRADYCARDIA [None]
